FAERS Safety Report 26205410 (Version 1)
Quarter: 2025Q4

REPORT INFORMATION
  Report Type: Spontaneous
  Country: US (occurrence: US)
  Receive Date: 20251228
  Receipt Date: 20251228
  Transmission Date: 20260118
  Serious: No
  Sender: BEIGENE
  Company Number: US-BEONEMEDICINES-BGN-2025-022029

PATIENT
  Sex: Female

DRUGS (2)
  1. BRUKINSA [Suspect]
     Active Substance: ZANUBRUTINIB
     Indication: Waldenstrom^s macroglobulinaemia
     Dosage: 320 MILLIGRAM, QD
     Route: 061
     Dates: start: 202202, end: 20251112
  2. BRUKINSA [Suspect]
     Active Substance: ZANUBRUTINIB
     Dosage: 160 MILLIGRAM, QD
     Route: 061
     Dates: start: 20251112

REACTIONS (3)
  - Eye haemorrhage [Recovering/Resolving]
  - Increased tendency to bruise [Recovering/Resolving]
  - Asthenia [Recovered/Resolved]
